FAERS Safety Report 6340161-0 (Version None)
Quarter: 2009Q3

REPORT INFORMATION
  Report Type: 
  Country: None (occurrence: None)
  Receive Date: 20090902
  Receipt Date: 20090817
  Transmission Date: 20100115
  Serious: Yes (Death, Other)
  Sender: FDA-Public Use
  Company Number: MC200900321

PATIENT
  Age: 47 Year
  Sex: Male

DRUGS (3)
  1. CLEVIPREX [Suspect]
     Indication: BLOOD PRESSURE MANAGEMENT
     Dosage: 21 MG, HR, INTRAVENOUS
     Route: 042
  2. CLEVIPREX [Suspect]
     Indication: HAEMORRHAGE INTRACRANIAL
     Dosage: 21 MG, HR, INTRAVENOUS
     Route: 042
  3. NICARDIPINE /00639802/ (NICARDIPINE HYDROCHLORIDE) [Concomitant]

REACTIONS (1)
  - BLOOD PRESSURE INADEQUATELY CONTROLLED [None]
